FAERS Safety Report 17072147 (Version 1)
Quarter: 2019Q4

REPORT INFORMATION
  Report Type: Spontaneous
  Country: US (occurrence: US)
  Receive Date: 20191025
  Receipt Date: 20191025
  Transmission Date: 20200122
  Serious: Yes (Hospitalization)
  Sender: FDA-Public Use
  Company Number: None

PATIENT
  Age: 23 Year
  Sex: Male
  Weight: 72.8 kg

DRUGS (4)
  1. IFOSFAMIDE. [Suspect]
     Active Substance: IFOSFAMIDE
     Dates: end: 20190913
  2. TAXOL [Suspect]
     Active Substance: PACLITAXEL
     Dates: end: 20190909
  3. CISPLATIN. [Suspect]
     Active Substance: CISPLATIN
     Dates: end: 20190913
  4. G-CSF (FILGRASTIM, AMGEN) [Suspect]
     Active Substance: FILGRASTIM
     Dates: end: 20190918

REACTIONS (8)
  - Chills [None]
  - Upper respiratory tract infection [None]
  - Nausea [None]
  - Diarrhoea [None]
  - Dizziness [None]
  - Productive cough [None]
  - Dysuria [None]
  - Pleuritic pain [None]

NARRATIVE: CASE EVENT DATE: 20190913
